FAERS Safety Report 4948442-X (Version None)
Quarter: 2006Q1

REPORT INFORMATION
  Report Type: 
  Country: None (occurrence: None)
  Receive Date: 20060314
  Receipt Date: 20060301
  Transmission Date: 20060701
  Serious: Yes (Other)
  Sender: FDA-Public Use
  Company Number: 2006026543

PATIENT
  Age: 31 Year
  Sex: Male
  Weight: 60 kg

DRUGS (1)
  1. UNASYN [Suspect]
     Indication: PNEUMONIA
     Dosage: 3 GRAM, INTRAVENOUS
     Route: 042
     Dates: start: 20060118, end: 20060118

REACTIONS (2)
  - ANAPHYLACTIC REACTION [None]
  - CYSTITIS [None]
